FAERS Safety Report 5774215-4 (Version None)
Quarter: 2008Q2

REPORT INFORMATION
  Report Type: 
  Country: None (occurrence: None)
  Receive Date: 20080616
  Receipt Date: 20080605
  Transmission Date: 20081010
  Serious: Yes (Other)
  Sender: FDA-Public Use
  Company Number: FR-ROCHE-568960

PATIENT
  Age: 88 Year
  Sex: Female

DRUGS (16)
  1. TAMIFLU [Suspect]
     Indication: INFLUENZA
     Route: 048
     Dates: start: 20080414, end: 20080418
  2. TAMIFLU [Suspect]
     Route: 048
     Dates: start: 20080418, end: 20080421
  3. PREVISCAN [Suspect]
     Indication: DRUG USE FOR UNKNOWN INDICATION
     Route: 048
     Dates: end: 20080418
  4. PREVISCAN [Suspect]
     Dosage: 1/2 TABLETS ON EVEN DAYS AND 1/4 TABLETS ON EVEN DAYS.
     Route: 048
  5. PREVISCAN [Suspect]
     Route: 048
     Dates: end: 20080418
  6. PREVISCAN [Suspect]
     Dosage: 1/2 TABLETS ON EVEN DAYS AND 1/4 TABLETS ON EVEN DAYS.
     Route: 048
  7. CORDARONE [Concomitant]
  8. PERINDOPRIL ERBUMINE [Concomitant]
  9. LASILIX 40 [Concomitant]
  10. CACIT D3 [Concomitant]
  11. CACIT D3 [Concomitant]
  12. FORLAX [Concomitant]
  13. FORLAX [Concomitant]
  14. FORLAX [Concomitant]
  15. DAFLON 500 [Concomitant]
  16. DAFLON 500 [Concomitant]

REACTIONS (2)
  - INTERNATIONAL NORMALISED RATIO INCREASED [None]
  - VOMITING [None]
